FAERS Safety Report 8733462 (Version 3)
Quarter: 2013Q4

REPORT INFORMATION
  Report Type: Spontaneous
  Country: GB (occurrence: GB)
  Receive Date: 20120821
  Receipt Date: 20131018
  Transmission Date: 20140711
  Serious: Yes (Life-Threatening, Hospitalization)
  Sender: FDA-Public Use
  Company Number: GB-SANOFI-AVENTIS-2012SA059361

PATIENT
  Age: 72 Year
  Sex: Male

DRUGS (8)
  1. CLOPIDOGREL BISULFATE [Suspect]
     Indication: MYOCARDIAL INFARCTION
     Route: 048
     Dates: start: 201206
  2. ASPIRIN [Suspect]
     Indication: ANTIPLATELET THERAPY
     Route: 048
     Dates: start: 201206, end: 20120717
  3. BLINDED THERAPY [Concomitant]
     Indication: ACUTE MYOCARDIAL INFARCTION
     Route: 048
     Dates: start: 20120625
  4. ATORVASTATIN [Concomitant]
  5. BISOPROLOL [Concomitant]
  6. FUROSEMIDE [Concomitant]
  7. PERINDOPRIL [Concomitant]
  8. GLYCERYL TRINITRATE [Concomitant]

REACTIONS (1)
  - Anaemia [Recovered/Resolved]
